FAERS Safety Report 5872328-X (Version None)
Quarter: 2008Q3

REPORT INFORMATION
  Report Type: 
  Country: None (occurrence: None)
  Receive Date: 20080905
  Receipt Date: 20080829
  Transmission Date: 20090109
  Serious: Yes (Other)
  Sender: FDA-Public Use
  Company Number: JP-TEVA-176669ISR

PATIENT
  Age: 31 Year
  Sex: Male

DRUGS (6)
  1. CISPLATIN [Suspect]
  2. ETOPOSIDE [Suspect]
     Dosage: 75-100 MG/M2
  3. BLEOMYCIN SULFATE [Suspect]
     Route: 030
  4. IFOSFAMIDE [Suspect]
     Dosage: 1600-1200
     Route: 030
  5. IFOSFAMIDE [Suspect]
     Dosage: 6000-10000MG/M2 (HIGH DOSE )
     Route: 030
  6. CARBOPLATIN [Suspect]

REACTIONS (3)
  - ANGINA PECTORIS [None]
  - CORONARY ARTERY STENOSIS [None]
  - HYPERTENSION [None]
